FAERS Safety Report 9767277 (Version 2)
Quarter: 2014Q1

REPORT INFORMATION
  Report Type: Spontaneous
  Country: FR (occurrence: FR)
  Receive Date: 20131217
  Receipt Date: 20140110
  Transmission Date: 20141002
  Serious: Yes (Hospitalization)
  Sender: FDA-Public Use
  Company Number: FR-JNJFOC-20131207312

PATIENT
  Age: 52 Year
  Sex: Female

DRUGS (4)
  1. XARELTO [Suspect]
     Indication: PRODUCT USED FOR UNKNOWN INDICATION
     Route: 048
     Dates: start: 20131109, end: 20131205
  2. TARCEVA [Suspect]
     Indication: LUNG ADENOCARCINOMA
     Route: 065
     Dates: start: 201305, end: 20131205
  3. APRANAX [Suspect]
     Indication: PRODUCT USED FOR UNKNOWN INDICATION
     Route: 048
     Dates: start: 20131128, end: 20131205
  4. HYDROCORTISONE [Concomitant]
     Route: 065

REACTIONS (5)
  - Anaemia [Recovering/Resolving]
  - Haematemesis [Not Recovered/Not Resolved]
  - Haemoglobin decreased [Not Recovered/Not Resolved]
  - Renal failure acute [Recovering/Resolving]
  - Malaise [Unknown]
